FAERS Safety Report 7102478-1 (Version None)
Quarter: 2010Q4

REPORT INFORMATION
  Report Type: 
  Country: None (occurrence: None)
  Receive Date: 20101115
  Receipt Date: 20090120
  Transmission Date: 20110411
  Serious: No
  Sender: FDA-Public Use
  Company Number: 2009BI002092

PATIENT
  Sex: Male

DRUGS (2)
  1. TYSABRI [Suspect]
     Indication: MULTIPLE SCLEROSIS
     Route: 042
     Dates: start: 20061122
  2. AMPYRA [Concomitant]
     Indication: MOTOR DYSFUNCTION

REACTIONS (3)
  - GAIT DISTURBANCE [None]
  - VISION BLURRED [None]
  - VISUAL ACUITY REDUCED [None]
